FAERS Safety Report 7320651-4 (Version None)
Quarter: 2011Q1

REPORT INFORMATION
  Report Type: 
  Country: None (occurrence: None)
  Receive Date: 20110228
  Receipt Date: 20110214
  Transmission Date: 20110831
  Serious: Yes (Life-Threatening, Hospitalization)
  Sender: FDA-Public Use
  Company Number: DE-GENENTECH-314179

PATIENT
  Sex: Male

DRUGS (9)
  1. GELONIDA [Concomitant]
     Indication: PRODUCT USED FOR UNKNOWN INDICATION
  2. BLINDED RANIBIZUMAB [Suspect]
     Indication: DIABETIC RETINAL OEDEMA
     Dosage: 0.5 ML, UNK
     Route: 031
     Dates: start: 20081217
  3. BERLINSULIN H [Concomitant]
     Indication: PRODUCT USED FOR UNKNOWN INDICATION
  4. DICLAC [Concomitant]
     Indication: PRODUCT USED FOR UNKNOWN INDICATION
  5. BLINDED PLACEBO [Suspect]
     Indication: DIABETIC RETINAL OEDEMA
     Dosage: 0.5 ML, UNK
     Route: 031
     Dates: start: 20081217
  6. BLINDED RANIBIZUMAB [Suspect]
     Dosage: UNK ML, UNK
     Route: 031
     Dates: start: 20110131
  7. PROTAPHANE [Concomitant]
     Indication: PRODUCT USED FOR UNKNOWN INDICATION
  8. BLINDED PLACEBO [Suspect]
     Dosage: UNK ML, UNK
     Route: 031
     Dates: start: 20110131
  9. PANTOZOL (BELGIUM) [Concomitant]
     Indication: PRODUCT USED FOR UNKNOWN INDICATION

REACTIONS (1)
  - MYOCARDIAL INFARCTION [None]
